FAERS Safety Report 8815840 (Version 4)
Quarter: 2014Q3

REPORT INFORMATION
  Report Type: Spontaneous
  Country: US (occurrence: US)
  Receive Date: 20120928
  Receipt Date: 20140814
  Transmission Date: 20150326
  Serious: Yes (Hospitalization, Other)
  Sender: FDA-Public Use
  Company Number: US-009507513-2012SP034972

PATIENT
  Sex: Female
  Weight: 142.86 kg

DRUGS (4)
  1. NUVARING [Suspect]
     Active Substance: ETHINYL ESTRADIOL\ETONOGESTREL
     Indication: CONTRACEPTION
     Dosage: 0.12-0.015 MG/24 HR X 3 WEEKS PER MONTH
     Route: 067
     Dates: start: 20081118, end: 20090818
  2. IBUPROFEN. [Concomitant]
     Active Substance: IBUPROFEN
     Indication: PRODUCT USED FOR UNKNOWN INDICATION
     Dosage: UNK
     Dates: start: 20081118, end: 20100709
  3. NUVARING [Suspect]
     Active Substance: ETHINYL ESTRADIOL\ETONOGESTREL
     Dosage: 0.12-0.015 MG/24 HR EVERY 3 WEEKS
     Route: 067
     Dates: start: 20091117, end: 20100702
  4. VITAMINS (UNSPECIFIED) [Concomitant]
     Active Substance: VITAMINS
     Indication: ROUTINE HEALTH MAINTENANCE
     Dosage: UNK
     Dates: start: 20081118, end: 20100709

REACTIONS (9)
  - Cervical dysplasia [Recovered/Resolved]
  - Withdrawal bleed [Unknown]
  - Anogenital warts [Unknown]
  - Amenorrhoea [Recovered/Resolved]
  - Limb injury [Unknown]
  - Leukocytosis [Recovered/Resolved]
  - Pulmonary mass [Unknown]
  - Pulmonary embolism [Unknown]
  - Hypersensitivity [Unknown]

NARRATIVE: CASE EVENT DATE: 20090617
